FAERS Safety Report 7820490-1 (Version None)
Quarter: 2011Q4

REPORT INFORMATION
  Report Type: 
  Country: None (occurrence: None)
  Receive Date: 20111018
  Receipt Date: 20111007
  Transmission Date: 20120403
  Serious: Yes (Hospitalization, Other)
  Sender: FDA-Public Use
  Company Number: US-BAYER-200941594NA

PATIENT
  Age: 24 Year
  Sex: Female
  Weight: 76 kg

DRUGS (18)
  1. METHIMAZOLE [Concomitant]
     Indication: THYROID DISORDER
     Route: 048
  2. LISINOPRIL AND HYDROCHLOROTHIAZIDE [Concomitant]
     Dosage: 20/12.5
     Route: 065
  3. ASPIRIN [Concomitant]
     Indication: HYPERCOAGULATION
     Route: 048
     Dates: start: 20080701
  4. DILANTIN [Concomitant]
     Route: 048
     Dates: start: 20051101
  5. NORCO [Concomitant]
     Dosage: ONE TABLET P.O. Q4 HOURS
     Route: 048
     Dates: start: 20051101
  6. UNKNOWN DRUG [Concomitant]
     Indication: HEADACHE
     Route: 065
     Dates: start: 20051116
  7. FLEXERIL [Concomitant]
     Indication: COCCYDYNIA
     Dosage: UNK
     Dates: start: 20051101
  8. LORTAB [Concomitant]
     Indication: HEADACHE
     Route: 048
  9. FIORICET [Concomitant]
     Indication: HEADACHE
     Dosage: ONE TO TWO TABLETS P.O. Q4 HOURS
     Route: 048
     Dates: start: 20051101
  10. GABAPENTIN [Concomitant]
     Route: 048
  11. PEPCID [Concomitant]
     Route: 065
  12. YASMIN [Suspect]
     Indication: ORAL CONTRACEPTION
     Route: 048
     Dates: start: 20030101, end: 20050101
  13. BACTRIM [Concomitant]
     Route: 065
     Dates: start: 20051116
  14. METHIMAZOLE [Concomitant]
     Route: 065
  15. VICODIN [Concomitant]
     Route: 048
  16. TRIPTAN [Concomitant]
     Indication: HEADACHE
     Route: 065
     Dates: start: 20051116
  17. WARFARIN SODIUM [Concomitant]
     Indication: HYPERCOAGULATION
     Route: 065
     Dates: start: 20051101, end: 20080701
  18. AMITRIPTYLINE HCL [Concomitant]
     Dosage: UNK
     Dates: start: 20051206

REACTIONS (7)
  - CEREBRAL ARTERY EMBOLISM [None]
  - CONFUSIONAL STATE [None]
  - HAEMORRHAGIC STROKE [None]
  - HEADACHE [None]
  - CEREBRAL HAEMORRHAGE [None]
  - APHASIA [None]
  - INTRACRANIAL VENOUS SINUS THROMBOSIS [None]
